FAERS Safety Report 8834076 (Version 1)
Quarter: 2012Q4

REPORT INFORMATION
  Report Type: Spontaneous
  Country: US (occurrence: None)
  Receive Date: 20121011
  Receipt Date: 20121011
  Transmission Date: 20130627
  Serious: Yes (Death, Life-Threatening, Hospitalization, Disabling, Other)
  Sender: FDA-Public Use
  Company Number: None

PATIENT
  Age: 53 Year
  Sex: Female
  Weight: 49.9 kg

DRUGS (3)
  1. METHYLPREDNISOLONE [Suspect]
     Indication: BACK PAIN
     Dates: start: 19980101, end: 20101215
  2. METHYLPREDNISOLONE [Suspect]
     Indication: SICKNESS
     Dates: start: 19980101, end: 20101215
  3. SALINE INJECTABLES [Suspect]

REACTIONS (2)
  - Meningitis cryptococcal [None]
  - Suspected transmission of an infectious agent via product [None]
